FAERS Safety Report 25393068 (Version 1)
Quarter: 2025Q2

REPORT INFORMATION
  Report Type: Spontaneous
  Country: SK (occurrence: SK)
  Receive Date: 20250604
  Receipt Date: 20250604
  Transmission Date: 20250716
  Serious: Yes (Other)
  Sender: AMGEN
  Company Number: SK-AMGEN-SVKSP2025107929

PATIENT

DRUGS (2)
  1. SOTORASIB [Suspect]
     Active Substance: SOTORASIB
     Indication: Product used for unknown indication
     Route: 065
  2. SOTORASIB [Suspect]
     Active Substance: SOTORASIB
     Route: 065

REACTIONS (3)
  - Epilepsy [Recovering/Resolving]
  - Metastases to central nervous system [Recovering/Resolving]
  - Liver function test increased [Recovering/Resolving]
